FAERS Safety Report 5640768-X (Version None)
Quarter: 2008Q1

REPORT INFORMATION
  Report Type: 
  Country: None (occurrence: None)
  Receive Date: 20080227
  Receipt Date: 20080216
  Transmission Date: 20080703
  Serious: Yes (Hospitalization)
  Sender: FDA-Public Use
  Company Number: US-JNJFOC-20080203746

PATIENT
  Age: 23 Year
  Sex: Male
  Weight: 68.04 kg

DRUGS (1)
  1. FENTANYL [Suspect]
     Indication: PROCEDURAL PAIN
     Route: 062

REACTIONS (3)
  - OFF LABEL USE [None]
  - PROCEDURAL PAIN [None]
  - SURGERY [None]
